FAERS Safety Report 4338552-2 (Version None)
Quarter: 2004Q2

REPORT INFORMATION
  Report Type: 
  Country: None (occurrence: None)
  Receive Date: 20040409
  Receipt Date: 20040326
  Transmission Date: 20050107
  Serious: Yes (Other)
  Sender: FDA-Public Use
  Company Number: 430007M03DEU

PATIENT
  Age: 35 Year
  Sex: Male

DRUGS (2)
  1. NOVANTRONE [Suspect]
     Indication: MULTIPLE SCLEROSIS
     Dosage: 19 MG, 1 IN 1 DAYS, INTRAVENOUS
     Route: 042
     Dates: start: 20031125, end: 20031125
  2. PREDNISOLONE [Suspect]
     Dosage: 300 MG, 1 IN 1 DAY, INTRAVENOUS
     Route: 042
     Dates: end: 20031120

REACTIONS (3)
  - DRUG INTERACTION [None]
  - MULTIPLE SCLEROSIS RELAPSE [None]
  - PANCREATITIS [None]
